FAERS Safety Report 4541033-4 (Version None)
Quarter: 2004Q4

REPORT INFORMATION
  Report Type: 
  Country: None (occurrence: None)
  Receive Date: 20041228
  Receipt Date: 20041213
  Transmission Date: 20050328
  Serious: Yes (Life-Threatening, Hospitalization)
  Sender: FDA-Public Use
  Company Number: PL-2004-036501

PATIENT
  Age: 27 Year
  Sex: Female

DRUGS (1)
  1. ULTRAVIST 300 [Suspect]
     Indication: COMPUTERISED TOMOGRAM THORAX
     Dosage: 100 M1, 1 DOSE, INTRAVENOUS
     Route: 042
     Dates: start: 20041209, end: 20041209

REACTIONS (11)
  - CONTRAST MEDIA REACTION [None]
  - CYANOSIS [None]
  - DEPRESSED LEVEL OF CONSCIOUSNESS [None]
  - DYSPNOEA [None]
  - FOAMING AT MOUTH [None]
  - HYPERSENSITIVITY [None]
  - HYPOTENSION [None]
  - HYPOTONIA [None]
  - SALIVARY HYPERSECRETION [None]
  - URINARY INCONTINENCE [None]
  - VOMITING [None]
